FAERS Safety Report 23241722 (Version 1)
Quarter: 2023Q4

REPORT INFORMATION
  Report Type: Spontaneous
  Country: AT (occurrence: AT)
  Receive Date: 20231129
  Receipt Date: 20231129
  Transmission Date: 20240109
  Serious: Yes (Other)
  Sender: FDA-Public Use
  Company Number: AT-GILEAD-2023-0651911

PATIENT
  Age: 55 Year
  Sex: Female

DRUGS (3)
  1. TRODELVY [Suspect]
     Active Substance: SACITUZUMAB GOVITECAN-HZIY
     Indication: Breast cancer
     Dosage: UNK
     Route: 065
     Dates: start: 202207
  2. GRANULOCYTE COLONY-STIMULATING FACTOR NOS [Concomitant]
     Active Substance: GRANULOCYTE COLONY-STIMULATING FACTOR NOS
  3. TRASTUZUMAB DERUXTECAN [Concomitant]
     Active Substance: TRASTUZUMAB DERUXTECAN
     Indication: Breast cancer

REACTIONS (11)
  - Metastases to liver [Unknown]
  - Diarrhoea haemorrhagic [Recovered/Resolved]
  - Carcinoembryonic antigen increased [Recovered/Resolved]
  - Metastases to lymph nodes [Recovering/Resolving]
  - Neutropenia [Unknown]
  - Fatigue [Unknown]
  - Productive cough [Unknown]
  - Diarrhoea [Recovered/Resolved]
  - Skin reaction [Unknown]
  - Ulcer [Unknown]
  - Gamma-glutamyltransferase increased [Unknown]

NARRATIVE: CASE EVENT DATE: 20220101
